FAERS Safety Report 10678309 (Version 1)
Quarter: 2014Q4

REPORT INFORMATION
  Report Type: Spontaneous
  Country: US (occurrence: None)
  Receive Date: 20141223
  Receipt Date: 20141223
  Transmission Date: 20150529
  Serious: Yes (Life-Threatening, Hospitalization, Disabling, Other)
  Sender: FDA-Public Use
  Company Number: 54973 AE # 1584

PATIENT
  Age: 04 Month
  Sex: Female

DRUGS (1)
  1. BABY TEETHING [Suspect]
     Active Substance: ARABICA COFFEE BEAN\ATROPA BELLADONNA\CALCIUM PHOSPHATE\CHAMOMILE
     Indication: TEETHING

REACTIONS (6)
  - Cerebrovascular accident [None]
  - Cerebral haemorrhage [None]
  - Visual impairment [None]
  - Child maltreatment syndrome [None]
  - Eye haemorrhage [None]
  - Seizure [None]

NARRATIVE: CASE EVENT DATE: 201008
